FAERS Safety Report 5880243-0 (Version None)
Quarter: 2008Q3

REPORT INFORMATION
  Report Type: 
  Country: None (occurrence: None)
  Receive Date: 20080911
  Receipt Date: 20080911
  Transmission Date: 20090109
  Serious: Yes (Hospitalization)
  Sender: FDA-Public Use
  Company Number: None

PATIENT
  Sex: Female
  Weight: 71.6683 kg

DRUGS (6)
  1. TOPAMAX [Suspect]
     Indication: BIPOLAR DISORDER
     Dosage: 400 MG BID PO
     Route: 048
     Dates: start: 20071001
  2. TOPAMAX [Suspect]
     Indication: MIGRAINE
     Dosage: 400 MG BID PO
     Route: 048
     Dates: start: 20071001
  3. GEODON [Concomitant]
  4. CLONAZEPAM [Concomitant]
  5. SOMA [Concomitant]
  6. ADDERALL XR 10 [Concomitant]

REACTIONS (1)
  - PULMONARY EMBOLISM [None]
